FAERS Safety Report 8473818-6 (Version None)
Quarter: 2012Q2

REPORT INFORMATION
  Report Type: 
  Country: None (occurrence: None)
  Receive Date: 20120628
  Receipt Date: 20111202
  Transmission Date: 20120825
  Serious: Yes (Death)
  Sender: FDA-Public Use
  Company Number: US-MYLANLABS-2011S1024949

PATIENT
  Age: 59 Year
  Sex: Female

DRUGS (7)
  1. HALDOL [Concomitant]
  2. LIPITOR [Concomitant]
  3. CLOZAPINE [Suspect]
     Indication: SCHIZOPHRENIA, PARANOID TYPE
     Route: 048
  4. ATENOLOL [Concomitant]
  5. FIBERCON [Concomitant]
  6. SYNTHROID [Concomitant]
  7. COLACE [Concomitant]

REACTIONS (1)
  - DEATH [None]
